FAERS Safety Report 9801513 (Version 4)
Quarter: 2014Q1

REPORT INFORMATION
  Report Type: Report from Study
  Country: US (occurrence: US)
  Receive Date: 20140107
  Receipt Date: 20140321
  Transmission Date: 20141002
  Serious: Yes (Death, Hospitalization)
  Sender: FDA-Public Use
  Company Number: US-ACTELION-A-US2013-93143

PATIENT
  Age: 44 Year
  Sex: Female

DRUGS (3)
  1. MACITENTAN [Suspect]
     Indication: PULMONARY ARTERIAL HYPERTENSION
     Dosage: 10 MG, QD
     Route: 048
     Dates: start: 20131204, end: 20140213
  2. REMODULIN [Concomitant]
  3. COUMADIN [Concomitant]

REACTIONS (5)
  - Pneumonia [Fatal]
  - Pulmonary arterial hypertension [Fatal]
  - Respiratory failure [Fatal]
  - Renal failure [Fatal]
  - Device related infection [Recovered/Resolved]
